FAERS Safety Report 6598168-4 (Version None)
Quarter: 2010Q1

REPORT INFORMATION
  Report Type: 
  Country: None (occurrence: None)
  Receive Date: 20100224
  Receipt Date: 20050120
  Transmission Date: 20100710
  Serious: No
  Sender: FDA-Public Use
  Company Number: US-ALLERGAN-200500893

PATIENT
  Sex: Female

DRUGS (1)
  1. BOTOX [Suspect]
     Indication: MUSCLE SPASMS
     Dosage: INJECTED INTO BACK, SHOULDER, NECK
     Route: 030

REACTIONS (2)
  - FATIGUE [None]
  - INJECTION SITE PAIN [None]
